FAERS Safety Report 4428305-9 (Version None)
Quarter: 2004Q3

REPORT INFORMATION
  Report Type: 
  Country: None (occurrence: None)
  Receive Date: 20040818
  Receipt Date: 20040806
  Transmission Date: 20050211
  Serious: Yes (Death)
  Sender: FDA-Public Use
  Company Number: US-JNJFOC-20040802216

PATIENT
  Sex: Female

DRUGS (14)
  1. INFLIXIMAB [Suspect]
     Indication: RHEUMATOID ARTHRITIS
     Route: 042
  2. TYLENOL [Concomitant]
  3. PREDNISONE [Concomitant]
  4. MAXZIDE [Concomitant]
  5. MAXZIDE [Concomitant]
  6. K-DUR 10 [Concomitant]
  7. FOLIC ACID [Concomitant]
  8. METHOTREXATE [Concomitant]
  9. COLACE [Concomitant]
  10. DIOVAN [Concomitant]
  11. CELEBREX [Concomitant]
  12. CALCIUM [Concomitant]
  13. DARVOCET-N 100 [Concomitant]
  14. DARVOCET-N 100 [Concomitant]

REACTIONS (1)
  - DEATH [None]
